FAERS Safety Report 23469427 (Version 2)
Quarter: 2024Q1

REPORT INFORMATION
  Report Type: Spontaneous
  Country: GR (occurrence: GR)
  Receive Date: 20240202
  Receipt Date: 20240322
  Transmission Date: 20240410
  Serious: Yes (Death, Hospitalization, Other)
  Sender: FDA-Public Use
  Company Number: GR-AMGEN-GRCSP2024018957

PATIENT
  Age: 68 Year
  Sex: Male

DRUGS (11)
  1. VECTIBIX [Suspect]
     Active Substance: PANITUMUMAB
     Indication: Colorectal cancer
     Dosage: UNK
     Route: 065
     Dates: start: 201602, end: 201606
  2. LEUCOVORIN [Concomitant]
     Active Substance: LEUCOVORIN\LEUCOVORIN CALCIUM
     Indication: Crohn^s disease
     Dosage: UNK
     Route: 065
     Dates: start: 201502
  3. LEUCOVORIN [Concomitant]
     Active Substance: LEUCOVORIN\LEUCOVORIN CALCIUM
     Indication: Colorectal cancer
  4. FLUOROURACIL [Concomitant]
     Active Substance: FLUOROURACIL
     Indication: Crohn^s disease
     Dosage: UNK
     Route: 065
     Dates: start: 201502
  5. FLUOROURACIL [Concomitant]
     Active Substance: FLUOROURACIL
     Indication: Colorectal cancer
  6. OXALIPLATIN [Concomitant]
     Active Substance: OXALIPLATIN
     Indication: Crohn^s disease
     Dosage: UNK
     Route: 065
     Dates: start: 201502
  7. OXALIPLATIN [Concomitant]
     Active Substance: OXALIPLATIN
     Indication: Colorectal cancer
  8. MESALAMINE [Concomitant]
     Active Substance: MESALAMINE
     Indication: Crohn^s disease
     Dosage: UNK
     Route: 065
     Dates: start: 201501
  9. MESALAMINE [Concomitant]
     Active Substance: MESALAMINE
     Indication: Colorectal cancer
  10. IRINOTECAN [Concomitant]
     Active Substance: IRINOTECAN
     Indication: Crohn^s disease
  11. IRINOTECAN [Concomitant]
     Active Substance: IRINOTECAN
     Indication: Colorectal cancer

REACTIONS (7)
  - Pneumonia aspiration [Fatal]
  - Colorectal cancer metastatic [Unknown]
  - Renal impairment [Unknown]
  - Vomiting [Unknown]
  - Ileus [Unknown]
  - Peripheral sensory neuropathy [Unknown]
  - Dermatitis [Unknown]

NARRATIVE: CASE EVENT DATE: 20160101
